FAERS Safety Report 5211680-5 (Version None)
Quarter: 2007Q1

REPORT INFORMATION
  Report Type: 
  Country: None (occurrence: None)
  Receive Date: 20070118
  Receipt Date: 20070109
  Transmission Date: 20070707
  Serious: Yes (Hospitalization)
  Sender: FDA-Public Use
  Company Number: GB-BAYER-200710019BNE

PATIENT
  Age: 72 Year
  Sex: Male

DRUGS (4)
  1. LEVITRA [Suspect]
     Dates: start: 20060601
  2. ASPIRIN [Concomitant]
     Dates: start: 19860101
  3. DIPYRIDAMOLE [Concomitant]
     Dosage: TOTAL DAILY DOSE: 300 MG
     Dates: start: 19860101
  4. LANSOPRAZOLE [Concomitant]
     Dates: start: 19980101

REACTIONS (2)
  - DIVERTICULITIS [None]
  - HAEMORRHAGE [None]
